FAERS Safety Report 7401923-1 (Version None)
Quarter: 2011Q2

REPORT INFORMATION
  Report Type: 
  Country: None (occurrence: None)
  Receive Date: 20110408
  Receipt Date: 20110329
  Transmission Date: 20111010
  Serious: Yes (Other)
  Sender: FDA-Public Use
  Company Number: CH-JNJFOC-20110400471

PATIENT
  Age: 66 Year
  Sex: Female
  Weight: 78 kg

DRUGS (5)
  1. BISOPROLOL [Concomitant]
  2. PANTOPRAZOLE SODIUM [Concomitant]
  3. MARCOUMAR [Concomitant]
  4. PREDNISOLONE [Concomitant]
  5. SIMPONI [Suspect]
     Indication: PRODUCT USED FOR UNKNOWN INDICATION
     Route: 058

REACTIONS (1)
  - DYSPNOEA [None]
